FAERS Safety Report 25221895 (Version 1)
Quarter: 2025Q2

REPORT INFORMATION
  Report Type: Spontaneous
  Country: GR (occurrence: GR)
  Receive Date: 20250421
  Receipt Date: 20250421
  Transmission Date: 20250716
  Serious: Yes (Other)
  Sender: UCB
  Company Number: GR-UCBSA-2025023180

PATIENT
  Sex: Male

DRUGS (7)
  1. LEVETIRACETAM [Suspect]
     Active Substance: LEVETIRACETAM
     Indication: Sleep disorder
  2. LEVETIRACETAM [Suspect]
     Active Substance: LEVETIRACETAM
     Indication: Off label use
  3. FENFLURAMINE HYDROCHLORIDE [Suspect]
     Active Substance: FENFLURAMINE HYDROCHLORIDE
     Indication: Severe myoclonic epilepsy of infancy
     Dates: start: 202410
  4. DOM [Suspect]
     Active Substance: DOM
     Indication: Product used for unknown indication
  5. VALPROIC ACID [Suspect]
     Active Substance: VALPROIC ACID
     Indication: Product used for unknown indication
  6. CLOBAZAM [Suspect]
     Active Substance: CLOBAZAM
     Indication: Product used for unknown indication
  7. MELATONIN [Suspect]
     Active Substance: MELATONIN
     Indication: Product used for unknown indication

REACTIONS (7)
  - Seizure [Unknown]
  - Petit mal epilepsy [Recovered/Resolved]
  - Decreased appetite [Unknown]
  - Behaviour disorder [Recovering/Resolving]
  - Thermal burn [Unknown]
  - Febrile convulsion [Unknown]
  - Off label use [Unknown]
